FAERS Safety Report 22955835 (Version 6)
Quarter: 2024Q3

REPORT INFORMATION
  Report Type: Spontaneous
  Country: CO (occurrence: CO)
  Receive Date: 20230919
  Receipt Date: 20240731
  Transmission Date: 20241016
  Serious: Yes (Life-Threatening, Other)
  Sender: SANDOZ
  Company Number: CO-002147023-NVSC2020CO178285

PATIENT
  Age: 54 Year
  Sex: Female
  Weight: 54 kg

DRUGS (20)
  1. COSENTYX [Suspect]
     Active Substance: SECUKINUMAB
     Dosage: 150 MG QMO
     Route: 058
  2. COSENTYX [Suspect]
     Active Substance: SECUKINUMAB
     Dosage: 300 MG
     Route: 065
     Dates: start: 20200219
  3. COSENTYX [Suspect]
     Active Substance: SECUKINUMAB
     Dosage: 150 MG, QMO
     Route: 058
  4. COSENTYX [Suspect]
     Active Substance: SECUKINUMAB
     Dosage: 150 MG, QMO
     Route: 058
  5. COSENTYX [Suspect]
     Active Substance: SECUKINUMAB
     Indication: Psoriatic arthropathy
     Dosage: 300 MG, QMO
     Route: 058
     Dates: start: 20200130
  6. COSENTYX [Suspect]
     Active Substance: SECUKINUMAB
     Dosage: 300 MG, QMO
     Route: 058
  7. COSENTYX [Suspect]
     Active Substance: SECUKINUMAB
     Dosage: 300 MG, QMO  (27 JUN)
     Route: 058
  8. COSENTYX [Suspect]
     Active Substance: SECUKINUMAB
     Dosage: 300 MG, QMO (2 / 300 MG)
     Route: 065
     Dates: start: 2022
  9. METFORMIN HYDROCHLORIDE [Suspect]
     Active Substance: METFORMIN HYDROCHLORIDE
     Indication: Glucose tolerance impaired
     Dosage: 850 MG, QD
     Route: 048
  10. METFORMIN HYDROCHLORIDE [Suspect]
     Active Substance: METFORMIN HYDROCHLORIDE
     Dosage: UNKEVERY OTHER DAY
     Route: 065
  11. ZOLEDRONIC ACID [Suspect]
     Active Substance: ZOLEDRONIC ACID
     Indication: Product used for unknown indication
     Dosage: UNK (EVERY YEAR)
     Route: 042
  12. CELECOXIB [Concomitant]
     Active Substance: CELECOXIB
     Indication: Inflammation
     Dosage: 200 MG (MONDAY, WEDNESDAY AND FRIDAYS)
     Route: 048
  13. COLCHICINE [Concomitant]
     Active Substance: COLCHICINE
     Indication: Product used for unknown indication
     Dosage: UNK (LASTED 2 YEARS)
     Route: 065
     Dates: end: 20240718
  14. EZETIMIBE [Concomitant]
     Active Substance: EZETIMIBE
     Indication: Dyslipidaemia
     Dosage: 10 MG, QD
     Route: 048
  15. EZETIMIBE [Concomitant]
     Active Substance: EZETIMIBE
     Indication: Dyslipidaemia
     Dosage: 10 MG, QD
     Route: 048
  16. LEVOTHYROXINE [Concomitant]
     Active Substance: LEVOTHYROXINE\LEVOTHYROXINE SODIUM
     Dosage: 50 MG, QD (FROM MONDAY TO FRIDAY)
     Route: 065
  17. LEVOTHYROXINE [Concomitant]
     Active Substance: LEVOTHYROXINE\LEVOTHYROXINE SODIUM
     Indication: Hypothyroidism
     Dosage: 50 MCG/ML, QD
     Route: 048
  18. ROSUVASTATIN [Concomitant]
     Active Substance: ROSUVASTATIN\ROSUVASTATIN CALCIUM
     Indication: Blood cholesterol
     Dosage: 10 MG (MONDAY, WEDNESDAY AND FRIDAYS)
     Route: 048
  19. SULFASALAZINE [Concomitant]
     Active Substance: SULFASALAZINE
     Indication: Arthralgia
     Dosage: 500 MG, Q12H
     Route: 048
  20. SULFASALAZINE [Concomitant]
     Active Substance: SULFASALAZINE
     Indication: Arthralgia
     Dosage: 500 MG, Q12H
     Route: 048

REACTIONS (25)
  - Metabolic disorder [Unknown]
  - Psoriatic arthropathy [Unknown]
  - Decreased immune responsiveness [Unknown]
  - Body height decreased [Not Recovered/Not Resolved]
  - Dry skin [Unknown]
  - Mucosal dryness [Unknown]
  - Feeling abnormal [Unknown]
  - Alopecia [Unknown]
  - Psoriasis [Unknown]
  - Thyroid function test abnormal [Unknown]
  - Blood calcium abnormal [Unknown]
  - Skin lesion [Recovering/Resolving]
  - Rebound psoriasis [Unknown]
  - Heart rate decreased [Unknown]
  - Skin discomfort [Unknown]
  - Arthralgia [Not Recovered/Not Resolved]
  - Hypertension [Unknown]
  - Influenza [Unknown]
  - Arthritis [Not Recovered/Not Resolved]
  - Pain [Unknown]
  - Bone pain [Unknown]
  - Headache [Recovered/Resolved]
  - Hypersensitivity [Recovered/Resolved]
  - Drug ineffective [Unknown]
  - Off label use [Unknown]

NARRATIVE: CASE EVENT DATE: 20200130
